FAERS Safety Report 4742102-6 (Version None)
Quarter: 2005Q3

REPORT INFORMATION
  Report Type: 
  Country: None (occurrence: None)
  Receive Date: 20050808
  Receipt Date: 20050729
  Transmission Date: 20060218
  Serious: Yes (Death, Other)
  Sender: FDA-Public Use
  Company Number: 2005-07-2238

PATIENT
  Age: 77 Year
  Sex: Male

DRUGS (3)
  1. FLUTAMIDE [Suspect]
     Indication: PROSTATE CANCER
     Dosage: 375MG ORAL
     Route: 048
     Dates: start: 20000323, end: 20010627
  2. LEUPLIN [Suspect]
     Indication: PROSTATE CANCER
     Dosage: 3.75 MG SUBCUTANEOUS
     Route: 058
     Dates: start: 20000323
  3. BICALUTAMIDE [Suspect]
     Indication: PROSTATE CANCER
     Dosage: ORAL
     Route: 048
     Dates: start: 20010901

REACTIONS (4)
  - GASTRIC CANCER [None]
  - HEPATIC NEOPLASM MALIGNANT [None]
  - MALIGNANT NEOPLASM PROGRESSION [None]
  - PROSTATIC SPECIFIC ANTIGEN INCREASED [None]
